FAERS Safety Report 7578412-7 (Version None)
Quarter: 2011Q2

REPORT INFORMATION
  Report Type: 
  Country: None (occurrence: None)
  Receive Date: 20110628
  Receipt Date: 20110622
  Transmission Date: 20111010
  Serious: Yes (Hospitalization)
  Sender: FDA-Public Use
  Company Number: US-ACTELION-A-US2011-50391

PATIENT

DRUGS (1)
  1. TRACLEER [Suspect]
     Indication: PULMONARY ARTERIAL HYPERTENSION
     Dosage: UNK
     Route: 048
     Dates: start: 20110519, end: 20110601

REACTIONS (6)
  - DIZZINESS [None]
  - HEART RATE INCREASED [None]
  - LIMB DISCOMFORT [None]
  - FEELING ABNORMAL [None]
  - CHEST PAIN [None]
  - INFLUENZA [None]
